FAERS Safety Report 22861370 (Version 2)
Quarter: 2023Q4

REPORT INFORMATION
  Report Type: Spontaneous
  Country: US (occurrence: US)
  Receive Date: 20230824
  Receipt Date: 20231218
  Transmission Date: 20240109
  Serious: No
  Sender: FDA-Public Use
  Company Number: US-PFIZER INC-202300281653

PATIENT
  Age: 59 Year
  Sex: Female
  Weight: 61.23 kg

DRUGS (1)
  1. OXBRYTA [Suspect]
     Active Substance: VOXELOTOR
     Indication: Sickle cell anaemia
     Dosage: 1500 MG, 1X/DAY (500MG, 3 TABLETS ONCE DAILY)
     Route: 048
     Dates: start: 202308, end: 202309

REACTIONS (8)
  - Rash [Recovered/Resolved]
  - Pruritus [Recovering/Resolving]
  - Diarrhoea [Unknown]
  - Headache [Unknown]
  - Joint swelling [Recovered/Resolved]
  - Cellulitis [Recovered/Resolved]
  - Burning sensation [Unknown]
  - Hypersensitivity [Unknown]

NARRATIVE: CASE EVENT DATE: 20230101
